FAERS Safety Report 14938988 (Version 5)
Quarter: 2019Q3

REPORT INFORMATION
  Report Type: Report from Study
  Country: CO (occurrence: CO)
  Receive Date: 20180525
  Receipt Date: 20190806
  Transmission Date: 20191004
  Serious: Yes (Death, Hospitalization, Other)
  Sender: FDA-Public Use
  Company Number: CO-ACTELION-A-CH2018-172615

PATIENT
  Age: 83 Year
  Sex: Female
  Weight: 60 kg

DRUGS (3)
  1. OPSUMIT [Suspect]
     Active Substance: MACITENTAN
     Dosage: 10 MG, QD
     Route: 048
     Dates: start: 20190427, end: 201906
  2. OPSUMIT [Suspect]
     Active Substance: MACITENTAN
     Indication: PULMONARY ARTERIAL HYPERTENSION
     Dosage: 10 MG, QD
     Route: 048
     Dates: start: 20180212
  3. SILDENAFIL. [Concomitant]
     Active Substance: SILDENAFIL

REACTIONS (15)
  - Cyanosis [Not Recovered/Not Resolved]
  - Asphyxia [Not Recovered/Not Resolved]
  - Agitation [Not Recovered/Not Resolved]
  - Oxygen therapy [Unknown]
  - Fall [Unknown]
  - Cardio-respiratory arrest [Fatal]
  - Exercise tolerance decreased [Unknown]
  - Peripheral swelling [Not Recovered/Not Resolved]
  - Swelling face [Not Recovered/Not Resolved]
  - Asthenia [Not Recovered/Not Resolved]
  - Dyspnoea [Not Recovered/Not Resolved]
  - Pulmonary embolism [Not Recovered/Not Resolved]
  - Oxygen saturation decreased [Unknown]
  - Concomitant disease aggravated [Not Recovered/Not Resolved]
  - Oxygen consumption increased [Not Recovered/Not Resolved]

NARRATIVE: CASE EVENT DATE: 20180212
